FAERS Safety Report 6898000-5 (Version None)
Quarter: 2010Q3

REPORT INFORMATION
  Report Type: 
  Country: None (occurrence: None)
  Receive Date: 20100802
  Receipt Date: 20070822
  Transmission Date: 20110219
  Serious: No
  Sender: FDA-Public Use
  Company Number: US-PFIZER INC-2007069656

PATIENT
  Age: 54 Year
  Sex: Female
  Weight: 59.1 kg

DRUGS (2)
  1. LYRICA [Suspect]
     Indication: POST HERPETIC NEURALGIA
     Dates: start: 20070101
  2. ALPHA LIPOIC ACID [Concomitant]
     Indication: POST HERPETIC NEURALGIA

REACTIONS (4)
  - DRUG EFFECT DECREASED [None]
  - FATIGUE [None]
  - FEELING ABNORMAL [None]
  - PAIN [None]
